FAERS Safety Report 7319021-4 (Version None)
Quarter: 2011Q1

REPORT INFORMATION
  Report Type: 
  Country: None (occurrence: None)
  Receive Date: 20110228
  Receipt Date: 20110218
  Transmission Date: 20110831
  Serious: Yes (Other)
  Sender: FDA-Public Use
  Company Number: HR-PFIZER INC-2011041791

PATIENT
  Age: 61 Year
  Sex: Male

DRUGS (3)
  1. IRUMED [Concomitant]
     Dosage: 1 DF, 1X/DAY
     Route: 048
     Dates: start: 20000101, end: 20000101
  2. CONTROLOC [Suspect]
     Indication: DYSPEPSIA
     Dosage: 40 MG, 2X/DAY
     Route: 065
     Dates: start: 20101201, end: 20101201
  3. CONTROLOC [Suspect]
     Indication: ABDOMINAL PAIN UPPER

REACTIONS (2)
  - JOINT SWELLING [None]
  - VISION BLURRED [None]
